FAERS Safety Report 4715710-6 (Version None)
Quarter: 2005Q2

REPORT INFORMATION
  Report Type: 
  Country: None (occurrence: None)
  Receive Date: 20050630
  Receipt Date: 20050413
  Transmission Date: 20051028
  Serious: No
  Sender: FDA-Public Use
  Company Number: 213863

PATIENT
  Age: 87 Year
  Sex: Male

DRUGS (3)
  1. AVASTIN [Suspect]
     Indication: COLON CANCER METASTATIC
     Route: 065
  2. FLUOROURACIL [Concomitant]
  3. LEUCOVORIN CALCIUM [Concomitant]

REACTIONS (1)
  - HYPERAESTHESIA [None]
